FAERS Safety Report 15962976 (Version 1)
Quarter: 2019Q1

REPORT INFORMATION
  Report Type: Spontaneous
  Country: DE (occurrence: DE)
  Receive Date: 20190214
  Receipt Date: 20190214
  Transmission Date: 20190417
  Serious: Yes (Other)
  Sender: FDA-Public Use
  Company Number: DE-SA-2019SA034486

PATIENT
  Age: 16 Year
  Sex: Male

DRUGS (6)
  1. ALPROLIX [Suspect]
     Active Substance: EFTRENONACOG ALFA
     Indication: FACTOR IX DEFICIENCY
     Dosage: 2500 IU
     Route: 042
     Dates: start: 20170521, end: 20170524
  2. ALPROLIX [Suspect]
     Active Substance: EFTRENONACOG ALFA
     Dosage: 2500 IU, QOD
     Route: 042
     Dates: start: 20170531, end: 20170531
  3. ALPROLIX [Suspect]
     Active Substance: EFTRENONACOG ALFA
     Dosage: 2500 IU
     Route: 042
     Dates: start: 20170526, end: 20170526
  4. ALPROLIX [Suspect]
     Active Substance: EFTRENONACOG ALFA
     Dosage: 1000 IU
     Route: 042
     Dates: start: 20170604, end: 20170604
  5. ALPROLIX [Suspect]
     Active Substance: EFTRENONACOG ALFA
     Dosage: UNK
     Route: 042
     Dates: start: 20170611
  6. ALPROLIX [Suspect]
     Active Substance: EFTRENONACOG ALFA
     Dosage: 2500 IU
     Route: 042
     Dates: start: 20170528, end: 20170528

REACTIONS (1)
  - Haemarthrosis [Recovered/Resolved]
